FAERS Safety Report 9713028 (Version 2)
Quarter: 2014Q1

REPORT INFORMATION
  Report Type: Report from Study
  Country: US (occurrence: US)
  Receive Date: 20131126
  Receipt Date: 20140113
  Transmission Date: 20141002
  Serious: Yes (Hospitalization)
  Sender: FDA-Public Use
  Company Number: US-ALEXION-A201303400

PATIENT
  Age: 77 Year
  Sex: Male
  Weight: 72 kg

DRUGS (21)
  1. SOLIRIS [Suspect]
     Indication: PAROXYSMAL NOCTURNAL HAEMOGLOBINURIA
     Dosage: UNK
     Route: 042
     Dates: start: 200704
  2. ALBUTEROL SULFATE [Concomitant]
     Dosage: 1.25 MG/3 ML AS DIRECTED
     Route: 055
  3. ALPRAZOLAM [Concomitant]
     Dosage: 0.5 MG, TID, AS NEEDED
     Route: 048
     Dates: start: 20110321
  4. ASPERCREME [Concomitant]
     Dosage: UNK
     Dates: start: 20101029
  5. BOOST [Concomitant]
     Dosage: 2 CANS DAILY
  6. DILAUDID [Concomitant]
     Dosage: 4 MG, TID
     Route: 048
  7. FOLIC ACID [Concomitant]
     Dosage: 1 MG, 2 TABS, QD
     Route: 048
     Dates: start: 20110113
  8. FUROSEMIDE [Concomitant]
     Dosage: 20 MG, QD, X 5 DAYS AND AS DIRECTED
     Dates: start: 20131223
  9. IMODIUM [Concomitant]
     Dosage: UNK
  10. KLONOPIN [Concomitant]
     Dosage: 0.5 MG, QD
     Route: 048
     Dates: start: 20101010
  11. MECLIZINE HYDROCHLORIDE [Concomitant]
     Dosage: 12.5 MG, TID
     Route: 048
     Dates: start: 20130916
  12. METAMUCIL [Concomitant]
     Dosage: UNK
  13. MULTIVITAMIN [Concomitant]
     Dosage: UNK
     Dates: start: 20101010
  14. PEPTO-BISMOL [Concomitant]
     Dosage: UNK
  15. POTASSIUM [Concomitant]
     Dosage: 99 MG, QD
     Route: 048
  16. PROVENTIL [Concomitant]
     Dosage: AS DIRECTED
     Dates: start: 20101029
  17. SLEEP AID [Concomitant]
     Dosage: 1 CAP AT BEDTIME
     Dates: start: 20101010
  18. SOMA [Concomitant]
     Dosage: 350 MG, PRN
     Route: 048
     Dates: start: 20101029
  19. SYNTHROID [Concomitant]
     Dosage: 125 ?G, QD
     Route: 048
     Dates: start: 20101010
  20. TAGAMET [Concomitant]
     Dosage: 300 MG, QD
     Route: 048
  21. ZOLPIDEM [Concomitant]
     Dosage: 5 MG, QD
     Route: 048
     Dates: start: 20131119

REACTIONS (3)
  - Hip fracture [Unknown]
  - Fall [Unknown]
  - Vertigo [Unknown]
